FAERS Safety Report 6356953 (Version 3)
Quarter: 2017Q3

REPORT INFORMATION
  Report Type: Spontaneous
  Country: US (occurrence: US)
  Receive Date: 20061017
  Receipt Date: 20170927
  Transmission Date: 20171128
  Serious: Yes (Hospitalization, Other)
  Sender: FDA-Public Use
  Company Number: US-PFIZER INC-2006124668

PATIENT
  Age: 57 Year
  Sex: Female
  Weight: 82 kg

DRUGS (3)
  1. CELEBREX [Suspect]
     Active Substance: CELECOXIB
     Indication: PAIN
     Dosage: 200 MG, 2X/DAY
     Dates: start: 20020320, end: 20050421
  2. VIOXX [Suspect]
     Active Substance: ROFECOXIB
     Indication: ARTHRITIS
     Dosage: 25 MG OR 50MG, 1X/DAY
     Dates: start: 20010831, end: 20040815
  3. VIOXX [Suspect]
     Active Substance: ROFECOXIB
     Indication: PAIN

REACTIONS (3)
  - Cardiovascular disorder [Unknown]
  - Ischaemic stroke [Unknown]
  - Myocardial infarction [Unknown]

NARRATIVE: CASE EVENT DATE: 20040220
